FAERS Safety Report 10518266 (Version 3)
Quarter: 2014Q4

REPORT INFORMATION
  Report Type: Spontaneous
  Country: JP (occurrence: JP)
  Receive Date: 20141015
  Receipt Date: 20141106
  Transmission Date: 20150528
  Serious: Yes (Life-Threatening, Other)
  Sender: FDA-Public Use
  Company Number: JP-AMGEN-JPNSP2014079383

PATIENT
  Age: 99 Year
  Sex: Female
  Weight: 30 kg

DRUGS (28)
  1. ROCEPHIN [Concomitant]
     Active Substance: CEFTRIAXONE SODIUM
     Indication: PNEUMONIA
     Dosage: 1 G, QD
     Route: 042
     Dates: start: 20140801, end: 20140805
  2. PRALIA [Suspect]
     Active Substance: DENOSUMAB
     Indication: OSTEOPOROSIS
     Dosage: 60 MG, UNK
     Route: 058
     Dates: start: 20140624
  3. LODOPIN                            /00639201/ [Suspect]
     Active Substance: ZOTEPINE
     Indication: DELIRIUM
  4. GLUCOSE [Concomitant]
     Active Substance: DEXTROSE
     Indication: DEHYDRATION
  5. SOLITA-T1 [Concomitant]
     Indication: CHRONIC KIDNEY DISEASE
     Dosage: 500 ML, UNK
     Route: 042
     Dates: start: 20140805
  6. VEGETAMIN B [Suspect]
     Active Substance: CHLORPROMAZINE HYDROCHLORIDE\PHENOBARBITAL\PROMETHAZINE
     Indication: DELIRIUM
  7. MIRCERA [Concomitant]
     Active Substance: PEGZEREPOETIN ALFA
     Indication: NEPHROGENIC ANAEMIA
     Dosage: 50 MUG, UNK
     Route: 058
     Dates: end: 20140611
  8. MIRCERA [Concomitant]
     Active Substance: PEGZEREPOETIN ALFA
     Dosage: 50 MUG, UNK
     Route: 058
     Dates: end: 20140711
  9. ANHIBA [Concomitant]
     Active Substance: ACETAMINOPHEN
     Indication: PYREXIA
  10. SOLITA-T1 [Concomitant]
     Indication: NEPHROGENIC ANAEMIA
  11. LODOPIN /00639201/ [Suspect]
     Active Substance: ZOTEPINE
     Indication: DEMENTIA
     Dosage: 12.5 MG, AS NECESSARY
     Route: 048
     Dates: start: 20140718, end: 20140808
  12. LASIX [Concomitant]
     Active Substance: FUROSEMIDE
     Indication: NEPHROGENIC ANAEMIA
  13. SEISHOKU [Concomitant]
     Active Substance: SODIUM CHLORIDE
     Indication: NEPHROGENIC ANAEMIA
  14. SOLITA-T1 [Concomitant]
     Indication: DEHYDRATION
  15. MIRCERA [Concomitant]
     Active Substance: PEGZEREPOETIN ALFA
     Indication: CHRONIC KIDNEY DISEASE
     Dosage: 50 MUG, UNK
     Route: 058
     Dates: start: 20140123, end: 20140611
  16. ZITHROMAC [Concomitant]
     Active Substance: AZITHROMYCIN DIHYDRATE
     Indication: PNEUMONIA
     Dosage: 250 MG, BID
     Route: 048
     Dates: start: 20140712, end: 20140805
  17. VEGETAMIN B [Suspect]
     Active Substance: CHLORPROMAZINE HYDROCHLORIDE\PHENOBARBITAL\PROMETHAZINE
     Indication: DEMENTIA
     Dosage: 1.5 DF, AS NECESSARY
     Route: 048
     Dates: start: 20140526
  18. LASIX [Concomitant]
     Active Substance: FUROSEMIDE
     Indication: CHRONIC KIDNEY DISEASE
  19. SEISHOKU [Concomitant]
     Active Substance: SODIUM CHLORIDE
     Indication: DEHYDRATION
  20. GLUCOSE [Concomitant]
     Active Substance: DEXTROSE
     Indication: CHRONIC KIDNEY DISEASE
     Dosage: 500 ML, UNK
     Route: 042
     Dates: start: 20140805
  21. GLUCOSE [Concomitant]
     Active Substance: DEXTROSE
     Indication: NEPHROGENIC ANAEMIA
  22. ZYPREXA [Suspect]
     Active Substance: OLANZAPINE
     Indication: DELIRIUM
  23. ALDACTONE [Concomitant]
     Active Substance: SPIRONOLACTONE
     Indication: CARDIAC FAILURE
     Dosage: 25 MG, QD
     Route: 048
     Dates: start: 20140417, end: 20140711
  24. ANHIBA [Concomitant]
     Active Substance: ACETAMINOPHEN
     Indication: PNEUMONIA
     Dosage: 200 MG, AS NECESSARY
     Route: 054
     Dates: start: 20140710
  25. SEISHOKU [Concomitant]
     Active Substance: SODIUM CHLORIDE
     Indication: CHRONIC KIDNEY DISEASE
     Dosage: 500 ML, UNK
     Route: 058
     Dates: start: 20140802, end: 20140804
  26. ZYPREXA [Suspect]
     Active Substance: OLANZAPINE
     Indication: DEMENTIA
     Dosage: 1.25 MG, TID
     Route: 048
     Dates: start: 20140627, end: 20140725
  27. LASIX [Concomitant]
     Active Substance: FUROSEMIDE
     Indication: CARDIAC FAILURE
     Dosage: 20 MG, QD
     Route: 048
     Dates: start: 20140501
  28. SOLDEM 3A [Concomitant]
     Active Substance: CARBOHYDRATES\POTASSIUM CHLORIDE\SODIUM CHLORIDE\SODIUM LACTATE
     Indication: PNEUMONIA
     Dosage: 500 ML, UNK
     Route: 058
     Dates: start: 20140801, end: 20140801

REACTIONS (13)
  - Laryngospasm [None]
  - Pneumonia [Recovering/Resolving]
  - Dyskinesia [None]
  - Malaise [None]
  - Musculoskeletal discomfort [None]
  - Seizure [None]
  - Cardiac failure [Recovering/Resolving]
  - Decreased appetite [None]
  - Eating disorder [None]
  - Bradycardia [None]
  - Drug effect decreased [None]
  - Hypocalcaemia [Recovered/Resolved]
  - Glossoptosis [None]

NARRATIVE: CASE EVENT DATE: 20140710
